FAERS Safety Report 6598729-2 (Version None)
Quarter: 2010Q1

REPORT INFORMATION
  Report Type: 
  Country: None (occurrence: None)
  Receive Date: 20100224
  Receipt Date: 20100212
  Transmission Date: 20100710
  Serious: Yes (Other)
  Sender: FDA-Public Use
  Company Number: DE-PFIZER INC-2010018774

PATIENT
  Age: 43 Year
  Sex: Female

DRUGS (2)
  1. CHAMPIX [Suspect]
     Dosage: 1/2 UNIT DOSE, 1X/DAY
     Route: 048
     Dates: start: 20100122, end: 20100125
  2. CHAMPIX [Suspect]
     Dosage: 1 UNIT DOSE, 1X/DAY
     Dates: start: 20100126, end: 20100128

REACTIONS (3)
  - ANXIETY [None]
  - CLAUSTROPHOBIA [None]
  - DELUSION [None]
